FAERS Safety Report 10043325 (Version 3)
Quarter: 2014Q2

REPORT INFORMATION
  Report Type: Spontaneous
  Country: US (occurrence: US)
  Receive Date: 20140328
  Receipt Date: 20140507
  Transmission Date: 20141212
  Serious: Yes (Life-Threatening, Hospitalization, Disabling)
  Sender: FDA-Public Use
  Company Number: US-009507513-1403USA009916

PATIENT
  Age: 70 Year
  Sex: Male

DRUGS (1)
  1. TICE BCG LIVE [Suspect]
     Indication: BLADDER CANCER
     Dosage: TOTAL SIX TREATMENTS
     Route: 043
     Dates: start: 201209, end: 2012

REACTIONS (3)
  - Bovine tuberculosis [Recovering/Resolving]
  - Arthritis bacterial [Recovering/Resolving]
  - Shoulder arthroplasty [Recovering/Resolving]
